FAERS Safety Report 20064815 (Version 1)
Quarter: 2021Q4

REPORT INFORMATION
  Report Type: Spontaneous
  Country: US (occurrence: US)
  Receive Date: 20211112
  Receipt Date: 20211112
  Transmission Date: 20220303
  Serious: No
  Sender: FDA-Public Use
  Company Number: US-HORIZON THERAPEUTICS-HZN-2021-006695

PATIENT

DRUGS (1)
  1. TEPEZZA [Suspect]
     Active Substance: TEPROTUMUMAB-TRBW
     Indication: Product used for unknown indication
     Dosage: UNK
     Route: 065

REACTIONS (7)
  - Diplopia [Not Recovered/Not Resolved]
  - Migraine [Unknown]
  - Taste disorder [Unknown]
  - Alopecia [Unknown]
  - Hypoacusis [Unknown]
  - Diarrhoea [Unknown]
  - Drug ineffective [Unknown]
